FAERS Safety Report 24828985 (Version 1)
Quarter: 2025Q1

REPORT INFORMATION
  Report Type: Report from Study
  Country: US (occurrence: US)
  Receive Date: 20250110
  Receipt Date: 20250110
  Transmission Date: 20250408
  Serious: Yes (Hospitalization, Other)
  Sender: ALEXION PHARMACEUTICALS
  Company Number: 202411USA024381US

PATIENT
  Age: 64 Year

DRUGS (1)
  1. OLAPARIB [Suspect]
     Active Substance: OLAPARIB
     Indication: Ovarian cancer
     Dosage: 150 MILLIGRAM, BID

REACTIONS (3)
  - Stoma obstruction [Recovered/Resolved]
  - Blood sodium decreased [Recovered/Resolved]
  - Rectal haemorrhage [Not Recovered/Not Resolved]
